FAERS Safety Report 11179090 (Version 1)
Quarter: 2015Q2

REPORT INFORMATION
  Report Type: Spontaneous
  Country: US (occurrence: US)
  Receive Date: 20150610
  Receipt Date: 20150610
  Transmission Date: 20150821
  Serious: Yes (Other)
  Sender: FDA-Public Use
  Company Number: US-GLAXOSMITHKLINE-US2015GSK078572

PATIENT
  Age: 57 Year
  Sex: Female

DRUGS (16)
  1. VENTOLIN HFA [Suspect]
     Active Substance: ALBUTEROL SULFATE
     Indication: PRODUCT USED FOR UNKNOWN INDICATION
     Dosage: 2 PUFF(S), EVERY 4 TO 6 HRS PRN
     Route: 055
  2. ADVAIR DISKUS [Suspect]
     Active Substance: FLUTICASONE PROPIONATE\SALMETEROL XINAFOATE
     Indication: PRODUCT USED FOR UNKNOWN INDICATION
     Dosage: 1 PUFF(S), BID
  3. PANTOPRAZOLE [Concomitant]
     Active Substance: PANTOPRAZOLE SODIUM
  4. VERAPAMIL ER [Concomitant]
     Active Substance: VERAPAMIL HYDROCHLORIDE
  5. FUROSEMIDE. [Concomitant]
     Active Substance: FUROSEMIDE
  6. INSULIN NOVOLOG [Concomitant]
  7. IPRATROPIUM [Concomitant]
     Active Substance: IPRATROPIUM
  8. XANAX [Concomitant]
     Active Substance: ALPRAZOLAM
  9. DRISDOL [Concomitant]
     Active Substance: ERGOCALCIFEROL
  10. METOPROLOL [Concomitant]
     Active Substance: METOPROLOL
  11. LANTUS SOLOSTAR [Concomitant]
     Active Substance: INSULIN GLARGINE
  12. FERROUS GLUCONATE [Concomitant]
     Active Substance: FERROUS GLUCONATE
  13. OXYGEN. [Concomitant]
     Active Substance: OXYGEN
  14. ALBUTEROL. [Concomitant]
     Active Substance: ALBUTEROL
  15. KLOR-CON [Concomitant]
     Active Substance: POTASSIUM CHLORIDE
  16. TYLENOL EXTRA STRENGTH [Concomitant]
     Active Substance: ACETAMINOPHEN

REACTIONS (18)
  - Lung disorder [Unknown]
  - Breast operation [Unknown]
  - Knee operation [Unknown]
  - Breast mass [Unknown]
  - Back pain [Unknown]
  - Haemorrhoid operation [Unknown]
  - Chemical injury [Unknown]
  - Catheterisation cardiac [Unknown]
  - Transfusion [Unknown]
  - Mineral supplementation [Unknown]
  - Haemorrhage [Unknown]
  - Herpes zoster [Unknown]
  - Colonoscopy abnormal [Unknown]
  - Laryngeal disorder [Unknown]
  - Aphasia [Recovered/Resolved]
  - Exposure to toxic agent [Unknown]
  - Pharyngeal disorder [Unknown]
  - Cardiac disorder [Unknown]

NARRATIVE: CASE EVENT DATE: 200312
